FAERS Safety Report 4690188-X (Version None)
Quarter: 2005Q2

REPORT INFORMATION
  Report Type: 
  Country: None (occurrence: None)
  Receive Date: 20050613
  Receipt Date: 20050606
  Transmission Date: 20051028
  Serious: Yes (Death)
  Sender: FDA-Public Use
  Company Number: 220003L05ITA

PATIENT
  Sex: Male

DRUGS (1)
  1. RECOMBINANT HUMAN GROWTH HORMONE (SOMATROPIN) [Suspect]
     Indication: PRADER-WILLI SYNDROME

REACTIONS (1)
  - SUDDEN DEATH [None]
